FAERS Safety Report 26186379 (Version 1)
Quarter: 2025Q4

REPORT INFORMATION
  Report Type: Spontaneous
  Country: US (occurrence: US)
  Receive Date: 20251222
  Receipt Date: 20251222
  Transmission Date: 20260119
  Serious: Yes (Life-Threatening, Other)
  Sender: ADVANZ PHARMA
  Company Number: US-MLMSERVICE-20251210-PI746343-00095-1

PATIENT

DRUGS (2)
  1. HYDROXYCHLOROQUINE [Suspect]
     Active Substance: HYDROXYCHLOROQUINE
     Indication: Systemic lupus erythematosus
     Dosage: 200 MG, QD (ALTERNATING DOSES OF 200 MG AND 400 MG DAILY)
     Route: 065
  2. HYDROXYCHLOROQUINE [Suspect]
     Active Substance: HYDROXYCHLOROQUINE
     Dosage: 400 MG, QD (ALTERNATING DOSES OF 200 MG AND 400 MG DAILY)
     Route: 065

REACTIONS (6)
  - Heart failure with reduced ejection fraction [Recovering/Resolving]
  - Microvascular coronary artery disease [Recovered/Resolved]
  - Heart valve incompetence [Recovering/Resolving]
  - Lupus endocarditis [Recovering/Resolving]
  - Cardiomyopathy [Recovering/Resolving]
  - Cardiotoxicity [Recovering/Resolving]
